FAERS Safety Report 6955841-3 (Version None)
Quarter: 2010Q3

REPORT INFORMATION
  Report Type: 
  Country: None (occurrence: None)
  Receive Date: 20100830
  Receipt Date: 20100517
  Transmission Date: 20110219
  Serious: Yes (Other)
  Sender: FDA-Public Use
  Company Number: US-AMGEN-QUU405950

PATIENT
  Sex: Female
  Weight: 50.1 kg

DRUGS (4)
  1. NPLATE [Suspect]
     Indication: IDIOPATHIC THROMBOCYTOPENIC PURPURA
     Route: 058
     Dates: start: 20090318, end: 20090401
  2. CORTICOSTEROIDS [Concomitant]
     Dates: start: 20090302
  3. RITUXIMAB [Concomitant]
     Dates: start: 20090318, end: 20090325
  4. PREDNISONE [Concomitant]
     Dates: start: 20090301, end: 20090501

REACTIONS (1)
  - DRUG INEFFECTIVE [None]
